FAERS Safety Report 25738864 (Version 1)
Quarter: 2025Q3

REPORT INFORMATION
  Report Type: Spontaneous
  Country: TR (occurrence: TR)
  Receive Date: 20250829
  Receipt Date: 20250829
  Transmission Date: 20251021
  Serious: Yes (Other)
  Sender: AMGEN
  Company Number: TR-AMGEN-TURSP2025167193

PATIENT

DRUGS (2)
  1. ADALIMUMAB [Suspect]
     Active Substance: ADALIMUMAB
     Indication: Vogt-Koyanagi-Harada disease
     Route: 065
  2. ADALIMUMAB [Suspect]
     Active Substance: ADALIMUMAB
     Dosage: 40 MILLIGRAM, QD
     Route: 065

REACTIONS (8)
  - Vogt-Koyanagi-Harada disease [Unknown]
  - Subretinal fibrosis [Unknown]
  - Drug ineffective for unapproved indication [Unknown]
  - Disruption of the photoreceptor inner segment-outer segment [Unknown]
  - Retinal depigmentation [Unknown]
  - Eye disorder [Unknown]
  - Macular pigmentary changes [Unknown]
  - Off label use [Unknown]
